FAERS Safety Report 18265945 (Version 2)
Quarter: 2020Q4

REPORT INFORMATION
  Report Type: Report from Study
  Country: AT (occurrence: AT)
  Receive Date: 20200915
  Receipt Date: 20201001
  Transmission Date: 20210113
  Serious: Yes (Hospitalization, Other)
  Sender: FDA-Public Use
  Company Number: AT-ROCHE-2676101

PATIENT
  Age: 73 Year
  Sex: Male
  Weight: 69.4 kg

DRUGS (6)
  1. ZARZIO [Concomitant]
     Active Substance: FILGRASTIM
  2. OBINUTUZUMAB. [Suspect]
     Active Substance: OBINUTUZUMAB
     Indication: DIFFUSE LARGE B-CELL LYMPHOMA
     Route: 042
     Dates: start: 20200610, end: 20200819
  3. VENETOCLAX. [Suspect]
     Active Substance: VENETOCLAX
     Indication: DIFFUSE LARGE B-CELL LYMPHOMA
     Route: 048
     Dates: start: 20200610, end: 20200819
  4. PANTOPRAZOLE [Concomitant]
     Active Substance: PANTOPRAZOLE
  5. MOTILIUM [Concomitant]
     Active Substance: DOMPERIDONE
  6. FRAGMINE [Concomitant]
     Active Substance: DALTEPARIN SODIUM

REACTIONS (4)
  - General physical health deterioration [Not Recovered/Not Resolved]
  - Splenic infarction [Not Recovered/Not Resolved]
  - Splenomegaly [Not Recovered/Not Resolved]
  - Diffuse large B-cell lymphoma [Unknown]

NARRATIVE: CASE EVENT DATE: 20200909
